FAERS Safety Report 13672614 (Version 3)
Quarter: 2017Q3

REPORT INFORMATION
  Report Type: Spontaneous
  Country: US (occurrence: US)
  Receive Date: 20170621
  Receipt Date: 20170720
  Transmission Date: 20171127
  Serious: Yes (Other)
  Sender: FDA-Public Use
  Company Number: US-GLAXOSMITHKLINE-US2017094775

PATIENT
  Sex: Male

DRUGS (2)
  1. POTIGA [Suspect]
     Active Substance: EZOGABINE
     Indication: EPILEPSY
     Dosage: 400 MG, TID
     Route: 048
     Dates: start: 201301
  2. POTIGA [Suspect]
     Active Substance: EZOGABINE
     Indication: TUBEROUS SCLEROSIS

REACTIONS (3)
  - Seizure [Not Recovered/Not Resolved]
  - Loss of consciousness [Recovered/Resolved]
  - Product use in unapproved indication [Unknown]
